FAERS Safety Report 7446008-3 (Version None)
Quarter: 2011Q2

REPORT INFORMATION
  Report Type: 
  Country: None (occurrence: None)
  Receive Date: 20110429
  Receipt Date: 20110419
  Transmission Date: 20111010
  Serious: Yes (Death)
  Sender: FDA-Public Use
  Company Number: US-GENZYME-CLOF-1001572

PATIENT
  Age: 48 Year
  Sex: Male

DRUGS (9)
  1. ACICLOVIR [Concomitant]
     Indication: PROPHYLAXIS
  2. CLOLAR [Suspect]
     Indication: ACUTE MYELOID LEUKAEMIA
     Dosage: 40 MG/KG, QD DAYS -6 THROUGH -2, OVER 2 HOURS
     Route: 042
  3. TACROLIMUS [Concomitant]
     Indication: PROPHYLAXIS AGAINST GRAFT VERSUS HOST DISEASE
     Dosage: STARTING DAY -3
  4. BUSULFAN [Suspect]
     Indication: ACUTE MYELOID LEUKAEMIA
     Dosage: 0.8 MG/KG, QID, ON DAYS -7 TO -4, OVER 2 HOURS
     Route: 065
  5. FLUCONAZOLE [Concomitant]
     Indication: PROPHYLAXIS
  6. CLOLAR [Suspect]
     Indication: STEM CELL TRANSPLANT
  7. CIPROFLOXACIN [Concomitant]
     Indication: PROPHYLAXIS
  8. BUSULFAN [Suspect]
     Indication: STEM CELL TRANSPLANT
  9. SIROLIMUS [Concomitant]
     Indication: PROPHYLAXIS AGAINST GRAFT VERSUS HOST DISEASE
     Dosage: STARTING DAY -3

REACTIONS (2)
  - ACUTE MYELOID LEUKAEMIA [None]
  - NEOPLASM MALIGNANT [None]
